FAERS Safety Report 6252091-3 (Version None)
Quarter: 2009Q2

REPORT INFORMATION
  Report Type: 
  Country: None (occurrence: None)
  Receive Date: 20090630
  Receipt Date: 20051206
  Transmission Date: 20091009
  Serious: Yes (Death)
  Sender: FDA-Public Use
  Company Number: US-ROCHE-638919

PATIENT
  Sex: Male

DRUGS (2)
  1. ENFUVIRTIDE [Suspect]
     Dosage: UNIT REPORTED AS ML.
     Route: 065
     Dates: start: 20050110, end: 20051108
  2. COMBIVIR [Concomitant]
     Dates: start: 20040122, end: 20051108

REACTIONS (1)
  - BRAIN CANCER METASTATIC [None]
